FAERS Safety Report 15507521 (Version 1)
Quarter: 2018Q4

REPORT INFORMATION
  Report Type: Spontaneous
  Country: US (occurrence: US)
  Receive Date: 20181016
  Receipt Date: 20181016
  Transmission Date: 20190205
  Serious: Yes (Other)
  Sender: FDA-Public Use
  Company Number: US-BECTON DICKINSON-2018BDN00395

PATIENT

DRUGS (3)
  1. CHLORAPREP [Suspect]
     Active Substance: CHLORHEXIDINE GLUCONATE\ISOPROPYL ALCOHOL
     Indication: INFECTION PROPHYLAXIS
     Dosage: UNK
     Route: 061
     Dates: start: 20180905, end: 20180905
  2. CHLORAPREP WITH TINT [Suspect]
     Active Substance: CHLORHEXIDINE GLUCONATE\ISOPROPYL ALCOHOL
     Indication: INFECTION PROPHYLAXIS
     Dosage: UNK
     Route: 061
     Dates: start: 20180905, end: 20180905
  3. 5FR DL POWERPICC SOLO CATHETER, FULL TRAY WITH TLS [Suspect]
     Active Substance: DEVICE

REACTIONS (1)
  - Foreign body [Not Recovered/Not Resolved]

NARRATIVE: CASE EVENT DATE: 20180909
